FAERS Safety Report 14222282 (Version 6)
Quarter: 2019Q2

REPORT INFORMATION
  Report Type: Report from Study
  Country: US (occurrence: US)
  Receive Date: 20171124
  Receipt Date: 20190523
  Transmission Date: 20190711
  Serious: Yes (Hospitalization, Other)
  Sender: FDA-Public Use
  Company Number: US-ARIAD PHARMACEUTICALS, INC-2017US009135

PATIENT
  Age: 29 Year
  Sex: Male

DRUGS (2)
  1. PONATINIB [Suspect]
     Active Substance: PONATINIB
     Indication: CHRONIC MYELOID LEUKAEMIA
     Dosage: 45 MILLIGRAM, QD
     Route: 048
     Dates: start: 201606
  2. PONATINIB [Suspect]
     Active Substance: PONATINIB
     Dosage: 45 MILLIGRAM, QD
     Route: 048
     Dates: start: 20170914

REACTIONS (11)
  - Febrile neutropenia [Recovered/Resolved]
  - Anxiety [Unknown]
  - White blood cell count increased [Unknown]
  - Pulmonary mass [Unknown]
  - Hepatosplenomegaly [Unknown]
  - Pain [Not Recovered/Not Resolved]
  - Foot amputation [Unknown]
  - Pancytopenia [Unknown]
  - Treatment noncompliance [Unknown]
  - Hospitalisation [Unknown]
  - Vision blurred [Unknown]

NARRATIVE: CASE EVENT DATE: 20171205
